FAERS Safety Report 5062550-7 (Version None)
Quarter: 2006Q3

REPORT INFORMATION
  Report Type: 
  Country: None (occurrence: None)
  Receive Date: 20060721
  Receipt Date: 20060707
  Transmission Date: 20061208
  Serious: Yes (Hospitalization)
  Sender: FDA-Public Use
  Company Number: US017276

PATIENT
  Age: 34 Year
  Sex: Male

DRUGS (9)
  1. TRISENOX [Suspect]
     Indication: ACUTE PROMYELOCYTIC LEUKAEMIA
     Dosage: 14.55 MG QD INTRAVENOUS DRIP
     Route: 041
     Dates: start: 20060113, end: 20060313
  2. TRISENOX [Suspect]
     Indication: ACUTE PROMYELOCYTIC LEUKAEMIA
     Dosage: 13.815 MG QD INTRAVENOUS DRIP
     Route: 041
     Dates: start: 20060404, end: 20060408
  3. TRISENOX [Suspect]
     Indication: ACUTE PROMYELOCYTIC LEUKAEMIA
     Dosage: 130815 MG QD INTRAVENOUS DRIP
     Route: 041
     Dates: start: 20060410, end: 20060415
  4. TRISENOX [Suspect]
     Indication: ACUTE PROMYELOCYTIC LEUKAEMIA
     Dosage: 13.815 MG QD INTRAVENOUS DRIP
     Route: 041
     Dates: start: 20060417, end: 20060422
  5. TRISENOX [Suspect]
     Indication: ACUTE PROMYELOCYTIC LEUKAEMIA
     Dosage: 13.815 MG QD INTRAVENOUS DRIP
     Route: 041
     Dates: start: 20060424, end: 20060501
  6. IDARUBICIN HCL [Suspect]
     Dosage: 25 MG QD INTRAVENOUS DRIP
     Route: 041
     Dates: start: 20060126, end: 20060127
  7. DANAPAROID SODIUM [Concomitant]
  8. LAFUTIDINE [Concomitant]
  9. FLUCONAZOLE [Concomitant]

REACTIONS (2)
  - FEBRILE NEUTROPENIA [None]
  - LEUKOPENIA [None]
